FAERS Safety Report 8757877 (Version 4)
Quarter: 2014Q2

REPORT INFORMATION
  Report Type: Report from Study
  Country: JP (occurrence: JP)
  Receive Date: 20120828
  Receipt Date: 20140415
  Transmission Date: 20141212
  Serious: Yes (Other)
  Sender: FDA-Public Use
  Company Number: JP-VERTEX PHARMACEUTICAL INC.-2012-019981

PATIENT
  Age: 69 Year
  Sex: Male

DRUGS (21)
  1. VX-950 (TELAPREVIR) [Suspect]
     Indication: CHRONIC HEPATITIS C
     Dosage: 1500 MG, QD
     Route: 048
     Dates: start: 20120514, end: 20120605
  2. VX-950 (TELAPREVIR) [Suspect]
     Dosage: 1000 MG, QD
     Route: 048
     Dates: start: 20120606, end: 20120624
  3. VX-950 (TELAPREVIR) [Suspect]
     Dosage: 500 MG, QD
     Route: 048
     Dates: start: 20120625, end: 20120806
  4. RIBAVIRIN [Suspect]
     Indication: CHRONIC HEPATITIS C
     Dosage: 800 MG, QD
     Route: 048
     Dates: start: 20120514, end: 20120605
  5. RIBAVIRIN [Suspect]
     Dosage: 600 MG, QD
     Route: 048
     Dates: start: 20120606, end: 20120624
  6. RIBAVIRIN [Suspect]
     Dosage: 200/ 400 MG, QOD
     Route: 048
     Dates: start: 20120625, end: 20121029
  7. RIBAVIRIN [Suspect]
     Dosage: UNK
     Route: 048
     Dates: end: 20121029
  8. PEGINTERFERON ALFA-2B [Suspect]
     Indication: CHRONIC HEPATITIS C
     Dosage: 1.16 ?G/KG, QW
     Route: 058
     Dates: start: 20120514, end: 20121029
  9. ALLOZYM [Concomitant]
     Dosage: 200 MG, QD
     Route: 048
  10. LIVALO [Concomitant]
     Dosage: 1 MG, QD
     Route: 048
  11. OMERAP [Concomitant]
     Dosage: 20 MG, QD
     Route: 048
  12. REBAMIPIDE [Concomitant]
     Dosage: 300 MG, QD
     Route: 048
  13. UNISIA [Concomitant]
     Dosage: 1 DF, QD
     Route: 048
  14. ACTOS [Concomitant]
     Dosage: 30 MG, QD
     Route: 048
  15. LIMARMONE [Concomitant]
     Dosage: 15 MG, QD
     Route: 048
  16. HUSTAZOL [Concomitant]
     Dosage: 10 MG, PRN
     Route: 048
     Dates: start: 20120528, end: 20121029
  17. LENDORMIN [Concomitant]
     Dosage: 0.25 MG, PRN
     Route: 048
     Dates: start: 20120528, end: 20121029
  18. HYPEN [Concomitant]
     Dosage: 200 MG, PRN
     Route: 048
     Dates: start: 20120528, end: 20121029
  19. PARIET [Concomitant]
     Dosage: 10 MG, QD
     Route: 048
     Dates: start: 20120606
  20. MUCOSTA [Concomitant]
     Dosage: 300 MG, QD
     Route: 048
     Dates: start: 20120606
  21. MUCOSTA [Concomitant]
     Dosage: 100 MG, QD
     Route: 048

REACTIONS (1)
  - Retinal haemorrhage [Unknown]
